FAERS Safety Report 9261510 (Version 2)
Quarter: 2013Q2

REPORT INFORMATION
  Report Type: Spontaneous
  Country: US (occurrence: US)
  Receive Date: 20130429
  Receipt Date: 20130626
  Transmission Date: 20140414
  Serious: Yes (Hospitalization, Other)
  Sender: FDA-Public Use
  Company Number: PHHY2013US039652

PATIENT
  Age: 87 Year
  Sex: Male

DRUGS (3)
  1. OXALIPLATIN [Suspect]
     Indication: SQUAMOUS CELL CARCINOMA
     Route: 042
  2. FOLINIC ACID [Concomitant]
     Indication: SQUAMOUS CELL CARCINOMA
     Route: 042
  3. 5 FLUORO URACIL [Concomitant]
     Indication: SQUAMOUS CELL CARCINOMA
     Route: 042

REACTIONS (8)
  - Pleural effusion [Recovering/Resolving]
  - Pneumonitis [Recovering/Resolving]
  - Mediastinitis [Recovering/Resolving]
  - Dyspnoea [Recovering/Resolving]
  - Chest pain [Recovering/Resolving]
  - Chest discomfort [Recovered/Resolved]
  - Infusion site extravasation [Unknown]
  - Pleural rub [Unknown]
